FAERS Safety Report 13625586 (Version 1)
Quarter: 2017Q2

REPORT INFORMATION
  Report Type: Spontaneous
  Country: AU (occurrence: AU)
  Receive Date: 20170607
  Receipt Date: 20170607
  Transmission Date: 20170830
  Serious: Yes (Other)
  Sender: FDA-Public Use
  Company Number: AU-SA-2017SA097621

PATIENT
  Sex: Male

DRUGS (10)
  1. LANTUS [Suspect]
     Active Substance: INSULIN GLARGINE
     Dosage: DOSE:22 UNIT(S)
     Route: 051
  2. OXYCODONE [Concomitant]
     Active Substance: OXYCODONE
  3. METFORMIN [Concomitant]
     Active Substance: METFORMIN HYDROCHLORIDE
  4. TIOTROPIUM [Concomitant]
     Active Substance: TIOTROPIUM
  5. SITAGLIPTIN [Concomitant]
     Active Substance: SITAGLIPTIN
  6. RAMIPRIL. [Concomitant]
     Active Substance: RAMIPRIL
  7. PARACETAMOL [Concomitant]
     Active Substance: ACETAMINOPHEN
  8. ROSUVASTATIN. [Concomitant]
     Active Substance: ROSUVASTATIN
  9. GLICLAZIDE [Concomitant]
     Active Substance: GLICLAZIDE
  10. MAGNESIUM ASPARTATE [Concomitant]
     Active Substance: MAGNESIUM ASPARTATE

REACTIONS (3)
  - Pancytopenia [Unknown]
  - Pyrexia [Unknown]
  - Myelodysplastic syndrome [Unknown]

NARRATIVE: CASE EVENT DATE: 201701
